FAERS Safety Report 18215665 (Version 1)
Quarter: 2020Q3

REPORT INFORMATION
  Report Type: Spontaneous
  Country: US (occurrence: US)
  Receive Date: 20200901
  Receipt Date: 20200901
  Transmission Date: 20201103
  Serious: Yes (Hospitalization)
  Sender: FDA-Public Use
  Company Number: US-SUN PHARMACEUTICAL INDUSTRIES LTD-2019R1-219256

PATIENT
  Age: 26 Year
  Sex: Male

DRUGS (4)
  1. RISPERIDONE. [Concomitant]
     Active Substance: RISPERIDONE
     Indication: SCHIZOAFFECTIVE DISORDER
     Dosage: 2 MILLIGRAM, BID
     Route: 065
  2. TRAZODONE [Concomitant]
     Active Substance: TRAZODONE HYDROCHLORIDE
     Indication: SCHIZOAFFECTIVE DISORDER
     Dosage: 50 MILLIGRAM, DAILY (AT BEDTIME)
     Route: 065
  3. CLOZAPINE. [Suspect]
     Active Substance: CLOZAPINE
     Indication: SCHIZOAFFECTIVE DISORDER
     Dosage: 75 MILLIGRAM, DAILY
     Route: 065
  4. LITHIUM. [Concomitant]
     Active Substance: LITHIUM
     Indication: SCHIZOAFFECTIVE DISORDER
     Dosage: 450 MILLIGRAM, BID
     Route: 065

REACTIONS (1)
  - Cardiac failure congestive [Recovered/Resolved]
